FAERS Safety Report 19124356 (Version 2)
Quarter: 2021Q2

REPORT INFORMATION
  Report Type: Other
  Country: US (occurrence: US)
  Receive Date: 20210413
  Receipt Date: 20210426
  Transmission Date: 20210717
  Serious: Yes (Death, Other)
  Sender: FDA-Public Use
  Company Number: US-INTERCEPT-PM2021001167

PATIENT
  Age: 46 Year
  Sex: Female

DRUGS (1)
  1. OCALIVA [Suspect]
     Active Substance: OBETICHOLIC ACID
     Indication: PRODUCT USE IN UNAPPROVED INDICATION
     Dosage: 5 MILLIGRAM, QW
     Route: 048
     Dates: start: 20191225, end: 202102

REACTIONS (3)
  - Hepatic cirrhosis [Unknown]
  - Death [Fatal]
  - Off label use [Unknown]

NARRATIVE: CASE EVENT DATE: 20191225
